FAERS Safety Report 7300943-5 (Version None)
Quarter: 2010Q4

REPORT INFORMATION
  Report Type: 
  Country: None (occurrence: None)
  Receive Date: 20101230
  Receipt Date: 20100208
  Transmission Date: 20110411
  Serious: Yes (Other)
  Sender: FDA-Public Use
  Company Number: 20100048

PATIENT
  Sex: Female

DRUGS (5)
  1. VENOFER [Suspect]
     Indication: ANAEMIA
     Dosage: 100 MG WEEKLY X 10 DOSES INTRAVENOUS
     Route: 042
     Dates: start: 20090701, end: 20100129
  2. DILTIAZEM [Concomitant]
  3. FISH OIL [Concomitant]
  4. TUMS [Concomitant]
  5. ACETAMINOPHEN [Concomitant]

REACTIONS (4)
  - CATHETER SITE ERYTHEMA [None]
  - EAR PAIN [None]
  - VISION BLURRED [None]
  - VOMITING [None]
